FAERS Safety Report 8238904-4 (Version None)
Quarter: 2012Q1

REPORT INFORMATION
  Report Type: 
  Country: None (occurrence: None)
  Receive Date: 20120327
  Receipt Date: 20120312
  Transmission Date: 20120608
  Serious: Yes (Other)
  Sender: FDA-Public Use
  Company Number: CN-WATSON-2012-04884

PATIENT
  Age: 15 Year
  Sex: Male

DRUGS (7)
  1. PREDNISONE TAB [Suspect]
     Indication: JUVENILE ARTHRITIS
     Dosage: 45 MG, DAILY
     Route: 065
  2. FOLIC ACID [Suspect]
     Indication: JUVENILE ARTHRITIS
     Dosage: UNK
     Route: 065
  3. METHOTREXATE [Suspect]
     Indication: JUVENILE ARTHRITIS
  4. VITAMIN D [Suspect]
     Indication: JUVENILE ARTHRITIS
  5. PROTON PUMP INHIBITOR [Suspect]
     Indication: JUVENILE ARTHRITIS
  6. HYDROXYCHLOROQUINE SULFATE [Suspect]
     Indication: JUVENILE ARTHRITIS
     Dosage: 200 MG, DAILY
     Route: 065
  7. CHEWABLE CALCIUM ANTACID [Suspect]
     Indication: JUVENILE ARTHRITIS
     Dosage: UNK
     Route: 065

REACTIONS (1)
  - BEZOAR [None]
